FAERS Safety Report 5248717-3 (Version None)
Quarter: 2007Q1

REPORT INFORMATION
  Report Type: 
  Country: None (occurrence: None)
  Receive Date: 20070223
  Receipt Date: 20070212
  Transmission Date: 20070707
  Serious: Yes (Other)
  Sender: FDA-Public Use
  Company Number: B0458971A

PATIENT
  Sex: 0

DRUGS (5)
  1. ALKERAN [Suspect]
     Indication: MULTIPLE MYELOMA
     Dosage: .25 MG/KG./CYCLIC/UNKNOWN
  2. LENALIDOMIDE (FORMULATION UNKNOWN) (LENALIDOMID) [Suspect]
     Indication: MULTIPLE MYELOMA
     Dosage: 10 MG/CYCLIC/ORAL
     Route: 048
  3. PREDNISONE (FORMULATION UNKNOWN) (PREDNISONE) [Suspect]
     Indication: MULTIPLE MYELOMA
     Dosage: 2 MG/KG/CYCLIC/UNKNOWN
  4. CIPROFLOXACIN [Concomitant]
  5. ASPIRIN [Concomitant]

REACTIONS (2)
  - DRUG TOXICITY [None]
  - PULMONARY EMBOLISM [None]
